FAERS Safety Report 5256049-2 (Version None)
Quarter: 2007Q1

REPORT INFORMATION
  Report Type: 
  Country: None (occurrence: None)
  Receive Date: 20070302
  Receipt Date: 20070302
  Transmission Date: 20070707
  Serious: Yes (Life-Threatening)
  Sender: FDA-Public Use
  Company Number: None

PATIENT
  Age: 91 Year
  Sex: Male
  Weight: 82.47 kg

DRUGS (2)
  1. LEVAQUIN [Suspect]
     Indication: DIABETIC FOOT
     Dosage: 500 MG PO DAILY
     Route: 048
     Dates: start: 20070129, end: 20070131
  2. GLYBURIDE [Suspect]
     Indication: DIABETES MELLITUS
     Dosage: 10 MG PO BID
     Route: 048
     Dates: end: 20070129

REACTIONS (1)
  - BLOOD GLUCOSE DECREASED [None]
